FAERS Safety Report 4578816-0 (Version None)
Quarter: 2005Q1

REPORT INFORMATION
  Report Type: 
  Country: None (occurrence: None)
  Receive Date: 20050209
  Receipt Date: 20050209
  Transmission Date: 20050727
  Serious: Yes (Hospitalization)
  Sender: FDA-Public Use
  Company Number: None

PATIENT
  Age: 36 Year
  Sex: Female
  Weight: 69.6725 kg

DRUGS (8)
  1. PHENYTOIN [Suspect]
     Indication: CONVULSION PROPHYLAXIS
     Dosage: PO BID
     Route: 048
     Dates: start: 20041101, end: 20041129
  2. KEPPRA [Concomitant]
  3. VICODIN [Concomitant]
  4. ALEVE [Concomitant]
  5. IBUPROFEN [Concomitant]
  6. STEROIDS [Concomitant]
  7. MICONAZOLE [Concomitant]
  8. PEPCID [Concomitant]

REACTIONS (11)
  - BODY TEMPERATURE INCREASED [None]
  - DERMATITIS EXFOLIATIVE [None]
  - DRY SKIN [None]
  - OEDEMA MOUTH [None]
  - RASH PRURITIC [None]
  - SKIN DISCOLOURATION [None]
  - SKIN SWELLING [None]
  - SKIN WARM [None]
  - SWELLING [None]
  - SWELLING FACE [None]
  - WHITE BLOOD CELL COUNT INCREASED [None]
